FAERS Safety Report 11849941 (Version 1)
Quarter: 2015Q4

REPORT INFORMATION
  Report Type: Spontaneous
  Country: TR (occurrence: TR)
  Receive Date: 20151218
  Receipt Date: 20151218
  Transmission Date: 20160305
  Serious: Yes (Hospitalization)
  Sender: FDA-Public Use
  Company Number: TR-PFIZER INC-2015438201

PATIENT
  Age: 31 Year
  Sex: Male

DRUGS (1)
  1. AMLODIPINE BESILATE [Suspect]
     Active Substance: AMLODIPINE BESYLATE
     Dosage: 210 MG, UNK
     Route: 048

REACTIONS (3)
  - Overdose [Unknown]
  - Hypoxic-ischaemic encephalopathy [Unknown]
  - Hypotension [Recovered/Resolved]
